FAERS Safety Report 4465468-3 (Version None)
Quarter: 2004Q3

REPORT INFORMATION
  Report Type: 
  Country: None (occurrence: None)
  Receive Date: 20040930
  Receipt Date: 20040927
  Transmission Date: 20050211
  Serious: Yes (Other)
  Sender: FDA-Public Use
  Company Number: ITWYE066527SEP04

PATIENT
  Age: 50 Year
  Sex: 0

DRUGS (1)
  1. TAZOSIN (PIPERACILLIN/ TAZOBACTAM, INJECTION) [Suspect]
     Indication: BRONCHITIS
     Dosage: UNKNOWN DOSE TWICE A DAY

REACTIONS (3)
  - ANURIA [None]
  - HYPOAESTHESIA [None]
  - PARAESTHESIA [None]
